FAERS Safety Report 7411905-1 (Version None)
Quarter: 2011Q2

REPORT INFORMATION
  Report Type: 
  Country: None (occurrence: None)
  Receive Date: 20110405
  Receipt Date: 20110325
  Transmission Date: 20111010
  Serious: Yes (Other)
  Sender: FDA-Public Use
  Company Number: AUR-APL-2011-01089

PATIENT
  Age: 40 Year
  Sex: Female

DRUGS (3)
  1. CLOZAPINE [Suspect]
     Indication: SCHIZOPHRENIA
     Dosage: 350MG-DAILY-
  2. RISPERDONE [Suspect]
     Indication: SCHIZOPHRENIA
     Dosage: 6MG-DAILY-
  3. FLUOXETINE [Suspect]
     Indication: OBSESSIVE-COMPULSIVE DISORDER
     Dosage: 80MG-DAILY-

REACTIONS (4)
  - OBSESSIVE-COMPULSIVE DISORDER [None]
  - SUICIDE ATTEMPT [None]
  - NO THERAPEUTIC RESPONSE [None]
  - ACTIVITIES OF DAILY LIVING IMPAIRED [None]
